FAERS Safety Report 13071913 (Version 2)
Quarter: 2017Q1

REPORT INFORMATION
  Report Type: Spontaneous
  Country: US (occurrence: US)
  Receive Date: 20161229
  Receipt Date: 20170110
  Transmission Date: 20170428
  Serious: Yes (Hospitalization)
  Sender: FDA-Public Use
  Company Number: US-UNITED THERAPEUTICS-UNT-2016-019541

PATIENT
  Age: 50 Year
  Sex: Male

DRUGS (1)
  1. ORENITRAM [Suspect]
     Active Substance: TREPROSTINIL
     Indication: PULMONARY ARTERIAL HYPERTENSION
     Dosage: 1.875 MG, TID
     Route: 048
     Dates: start: 20160614

REACTIONS (4)
  - Chest pain [Not Recovered/Not Resolved]
  - Cardiorenal syndrome [Unknown]
  - Pneumonia [Recovered/Resolved]
  - Acute right ventricular failure [Unknown]

NARRATIVE: CASE EVENT DATE: 20161220
